FAERS Safety Report 5642371-4 (Version None)
Quarter: 2008Q1

REPORT INFORMATION
  Report Type: 
  Country: None (occurrence: None)
  Receive Date: 20080227
  Receipt Date: 20080227
  Transmission Date: 20080703
  Serious: Yes (Hospitalization)
  Sender: FDA-Public Use
  Company Number: None

PATIENT
  Sex: Male
  Weight: 63.5036 kg

DRUGS (6)
  1. DIGOXIN [Suspect]
     Dosage: PO PRIOR TO ADMISSION
     Route: 048
  2. LIPITOR [Concomitant]
  3. PROSCAR [Concomitant]
  4. COREG [Concomitant]
  5. COUMADIN [Concomitant]
  6. LOPRESSOR [Concomitant]

REACTIONS (4)
  - FALL [None]
  - GAIT DISTURBANCE [None]
  - PAIN IN EXTREMITY [None]
  - THERAPEUTIC AGENT TOXICITY [None]
